FAERS Safety Report 6508038-5 (Version None)
Quarter: 2009Q4

REPORT INFORMATION
  Report Type: 
  Country: None (occurrence: None)
  Receive Date: 20091221
  Receipt Date: 20091207
  Transmission Date: 20100525
  Serious: No
  Sender: FDA-Public Use
  Company Number: GB-CVT-090682

PATIENT

DRUGS (11)
  1. RANEXA [Suspect]
     Indication: ANGINA PECTORIS
     Dosage: 375 MG, QD
     Route: 048
     Dates: start: 20090911, end: 20090901
  2. ASPIRIN [Concomitant]
  3. DICLOFENAC                         /00372301/ [Concomitant]
  4. GLYCERYL TRINITRATE [Concomitant]
  5. AMLODIPINE [Concomitant]
  6. LANSOPRAZOLE [Concomitant]
  7. ATORVASTATIN CALCIUM [Concomitant]
  8. NICORANDIL [Concomitant]
  9. MORPHINE SULFATE [Concomitant]
  10. ATENOLOL [Concomitant]
  11. TEMAZEPAM [Concomitant]
     Dosage: 20 MG, QD
     Route: 048

REACTIONS (4)
  - DYSPNOEA [None]
  - HEADACHE [None]
  - NAUSEA [None]
  - OEDEMA PERIPHERAL [None]
